FAERS Safety Report 18942469 (Version 5)
Quarter: 2023Q2

REPORT INFORMATION
  Report Type: Report from Study
  Country: PT (occurrence: IT)
  Receive Date: 20210225
  Receipt Date: 20230612
  Transmission Date: 20230722
  Serious: Yes (Life-Threatening)
  Sender: FDA-Public Use
  Company Number: IT-BIAL-BIAL-08329

PATIENT

DRUGS (17)
  1. ESLICARBAZEPINE ACETATE [Suspect]
     Active Substance: ESLICARBAZEPINE ACETATE
     Indication: Seizure prophylaxis
     Dosage: 800 MG, QD
     Route: 048
     Dates: start: 20210212, end: 20210214
  2. METOPROLOL [Suspect]
     Active Substance: METOPROLOL
     Indication: Atrial fibrillation
     Dosage: 100 MG, BID
     Route: 048
     Dates: start: 20210125
  3. METOPROLOL [Suspect]
     Active Substance: METOPROLOL
     Indication: Tachycardia
  4. DIGOXIN [Suspect]
     Active Substance: DIGOXIN
     Indication: Atrial fibrillation
     Dosage: 0.250 MG, SINGLE
     Route: 042
     Dates: start: 20210210, end: 20210210
  5. DIGOXIN [Suspect]
     Active Substance: DIGOXIN
     Dosage: 0.250 MG, QD
     Route: 048
     Dates: start: 20210211, end: 20210214
  6. ATORVASTATIN [Concomitant]
     Active Substance: ATORVASTATIN
     Indication: Cerebrovascular accident
     Dosage: 40 MG, QD
     Route: 048
     Dates: start: 20210208
  7. ATORVASTATIN [Concomitant]
     Active Substance: ATORVASTATIN
     Indication: Cerebrovascular accident prophylaxis
  8. ASPIRIN [Concomitant]
     Active Substance: ASPIRIN
     Indication: Cerebrovascular accident
     Dosage: 100 MG, QD
     Route: 048
     Dates: start: 20210208
  9. ASPIRIN [Concomitant]
     Active Substance: ASPIRIN
     Indication: Cerebrovascular accident prophylaxis
  10. PANTOPRAZOLE [Concomitant]
     Active Substance: PANTOPRAZOLE
     Indication: Gastrointestinal disorder prophylaxis
     Dosage: 20 MG, QD
     Route: 048
     Dates: start: 20210208
  11. ALTEPLASE [Concomitant]
     Active Substance: ALTEPLASE
     Indication: Cerebrovascular accident
     Dosage: 59 MG, SINGLE
     Route: 042
     Dates: start: 20210208, end: 20210208
  12. AMIODARONE [Concomitant]
     Active Substance: AMIODARONE
     Indication: Atrial fibrillation
     Dosage: 450 MG, CONTINUOUSLY
     Route: 042
     Dates: start: 20210218, end: 20210219
  13. AMIODARONE [Concomitant]
     Active Substance: AMIODARONE
     Indication: Atrial fibrillation
     Dosage: 200 MG, QD
     Route: 048
     Dates: start: 20210219, end: 20220613
  14. ENOXAPARIN [Concomitant]
     Active Substance: ENOXAPARIN
     Indication: Thrombosis prophylaxis
     Dosage: 4000 IU, QD
     Route: 058
     Dates: start: 20210209, end: 20210216
  15. APIXABAN [Concomitant]
     Active Substance: APIXABAN
     Indication: Cerebrovascular accident prophylaxis
     Dosage: 5 MG, SINGLE
     Route: 048
     Dates: start: 20210217, end: 20210217
  16. APIXABAN [Concomitant]
     Active Substance: APIXABAN
     Dosage: 10 MG, BID
     Route: 048
     Dates: start: 20210218
  17. QUINAPRIL [Concomitant]
     Active Substance: QUINAPRIL
     Indication: Hypertension
     Dosage: 20 MG, QD
     Route: 048
     Dates: start: 20210515

REACTIONS (1)
  - Nodal arrhythmia [Recovered/Resolved]

NARRATIVE: CASE EVENT DATE: 20210214
